FAERS Safety Report 10501400 (Version 1)
Quarter: 2014Q4

REPORT INFORMATION
  Report Type: Spontaneous
  Country: US (occurrence: None)
  Receive Date: 20141006
  Receipt Date: 20141006
  Transmission Date: 20150528
  Serious: Yes (Hospitalization)
  Sender: FDA-Public Use
  Company Number: None

PATIENT
  Age: 51 Year
  Sex: Male
  Weight: 79.1 kg

DRUGS (1)
  1. CARBAMAZEPINE. [Suspect]
     Active Substance: CARBAMAZEPINE
     Indication: TRIGEMINAL NEURALGIA
     Route: 048
     Dates: start: 20140729, end: 20140912

REACTIONS (11)
  - Transaminases increased [None]
  - Eosinophil count [None]
  - Headache [None]
  - Arthralgia [None]
  - Rash maculo-papular [None]
  - Drug reaction with eosinophilia and systemic symptoms [None]
  - Constipation [None]
  - Hepatic enzyme increased [None]
  - Myalgia [None]
  - Leukocytosis [None]
  - Pyrexia [None]

NARRATIVE: CASE EVENT DATE: 20140908
